FAERS Safety Report 5032447-7 (Version None)
Quarter: 2006Q2

REPORT INFORMATION
  Report Type: 
  Country: None (occurrence: None)
  Receive Date: 20060620
  Receipt Date: 20060605
  Transmission Date: 20061013
  Serious: Yes (Other)
  Sender: FDA-Public Use
  Company Number: US200605001829

PATIENT
  Age: 55 Year
  Sex: Female
  Weight: 72.1 kg

DRUGS (12)
  1. GEMZAR [Suspect]
     Indication: PANCREATIC CARCINOMA
     Dosage: 800 MG, WEEKLY (1/W), INTRAVENOUS
     Route: 042
     Dates: start: 20051221
  2. VOLTAREN /SCH/ (DICLOFENAC POTASSIUM) [Concomitant]
  3. VICODIN [Concomitant]
  4. PRILOSEC [Concomitant]
  5. KYTRIL [Concomitant]
  6. SYNTESTAN            (CLOPREDNOL) [Concomitant]
  7. AMBIEN [Concomitant]
  8. PROTONIX [Concomitant]
  9. POTASSIUM CHLORIDE [Concomitant]
  10. COUMADIN [Concomitant]
  11. MAXZIDE [Concomitant]
  12. ROBAXIN [Concomitant]

REACTIONS (4)
  - DEEP VEIN THROMBOSIS [None]
  - DYSPNOEA [None]
  - FATIGUE [None]
  - OEDEMA PERIPHERAL [None]
